FAERS Safety Report 10236166 (Version 1)
Quarter: 2014Q2

REPORT INFORMATION
  Report Type: Spontaneous
  Country: ES (occurrence: ES)
  Receive Date: 20140613
  Receipt Date: 20140613
  Transmission Date: 20141212
  Serious: Yes (Life-Threatening)
  Sender: FDA-Public Use
  Company Number: ES-BAYER-2014-084440

PATIENT
  Age: 60 Year
  Sex: Male

DRUGS (1)
  1. ULTRAVIST [Suspect]
     Route: 065
     Dates: start: 20140526

REACTIONS (1)
  - Erythema [Recovered/Resolved]
